FAERS Safety Report 5517640-9 (Version None)
Quarter: 2007Q4

REPORT INFORMATION
  Report Type: 
  Country: None (occurrence: None)
  Receive Date: 20071114
  Receipt Date: 20071108
  Transmission Date: 20080405
  Serious: Yes (Hospitalization)
  Sender: FDA-Public Use
  Company Number: US-ROXANE LABORATORIES, INC-2007-BP-24215RO

PATIENT
  Age: 31 Year
  Sex: Male

DRUGS (3)
  1. AZATHIOPRINE [Suspect]
     Indication: CROHN'S DISEASE
  2. PREDNISONE TAB [Suspect]
     Indication: CROHN'S DISEASE
  3. BROAD SPECTRUM ANTIBIOTICS [Concomitant]
     Indication: CELLULITIS

REACTIONS (5)
  - ACUTE FEBRILE NEUTROPHILIC DERMATOSIS [None]
  - C-REACTIVE PROTEIN INCREASED [None]
  - ERYTHEMA [None]
  - PYREXIA [None]
  - WHITE BLOOD CELL COUNT INCREASED [None]
